FAERS Safety Report 26142256 (Version 1)
Quarter: 2025Q4

REPORT INFORMATION
  Report Type: Spontaneous
  Country: US (occurrence: US)
  Receive Date: 20251210
  Receipt Date: 20251210
  Transmission Date: 20260119
  Serious: Yes (Hospitalization, Other)
  Sender: RK PHARMA
  Company Number: US-RK PHARMA, INC-20251200174

PATIENT

DRUGS (2)
  1. MITOMYCIN [Suspect]
     Active Substance: MITOMYCIN
     Indication: Anal squamous cell carcinoma
     Dosage: 8 MILLIGRAM/SQ. METER OVER 30 MIN
     Route: 042
  2. FLUOROURACIL [Suspect]
     Active Substance: FLUOROURACIL
     Indication: Anal squamous cell carcinoma
     Dosage: 2000 MILLIGRAM/SQ. METER OVER 96 H FOR 2 CYCLES
     Route: 042

REACTIONS (12)
  - Toxicity to various agents [Unknown]
  - Stomatitis [Recovering/Resolving]
  - Asthenia [Unknown]
  - Pallor [Unknown]
  - Diarrhoea [Unknown]
  - Nausea [Unknown]
  - Vomiting [Unknown]
  - Dyspnoea [Unknown]
  - Pulmonary congestion [Unknown]
  - Productive cough [Unknown]
  - Neutropenia [Recovered/Resolved]
  - Bacteriuria [Unknown]
